FAERS Safety Report 17539863 (Version 2)
Quarter: 2021Q1

REPORT INFORMATION
  Report Type: Spontaneous
  Country: JP (occurrence: JP)
  Receive Date: 20200313
  Receipt Date: 20210129
  Transmission Date: 20210419
  Serious: Yes (Other)
  Sender: FDA-Public Use
  Company Number: JP-PFIZER INC-2020107119

PATIENT
  Age: 5 Year
  Sex: Male

DRUGS (1)
  1. METHOTREXATE SODIUM. [Suspect]
     Active Substance: METHOTREXATE SODIUM
     Indication: PROPHYLAXIS
     Dosage: UNK

REACTIONS (11)
  - Lip erythema [Unknown]
  - Rash [Unknown]
  - Pruritus [Unknown]
  - Pyrexia [Recovered/Resolved]
  - Hepatic function abnormal [Unknown]
  - Bacterial infection [Unknown]
  - Vomiting [Unknown]
  - Conjunctival hyperaemia [Recovered/Resolved]
  - Skin exfoliation [Recovered/Resolved]
  - Lip swelling [Unknown]
  - Inflammation [Unknown]
